FAERS Safety Report 7898860-5 (Version None)
Quarter: 2011Q4

REPORT INFORMATION
  Report Type: 
  Country: None (occurrence: None)
  Receive Date: 20111107
  Receipt Date: 20110425
  Transmission Date: 20120403
  Serious: No
  Sender: FDA-Public Use
  Company Number: US-BAYER-2011-072859

PATIENT
  Age: 75 Year
  Sex: Male
  Weight: 73 kg

DRUGS (5)
  1. ACETYLSALICYLIC ACID SRT [Concomitant]
  2. FLOMAX [Concomitant]
  3. MAGNESIUM HYDROXIDE TAB [Suspect]
     Dosage: 1 DF, QD
     Route: 048
     Dates: start: 20110313
  4. METOPROLOL [Concomitant]
  5. MAGNESIUM HYDROXIDE TAB [Suspect]
     Dosage: 2 DF, QD
     Route: 048
     Dates: start: 20110313

REACTIONS (1)
  - NO ADVERSE EVENT [None]
